FAERS Safety Report 4900070-8 (Version None)
Quarter: 2006Q1

REPORT INFORMATION
  Report Type: 
  Country: None (occurrence: None)
  Receive Date: 20060201
  Receipt Date: 20060111
  Transmission Date: 20060701
  Serious: Yes (Hospitalization, Other)
  Sender: FDA-Public Use
  Company Number: US200601001576

PATIENT
  Age: 56 Year
  Sex: Male

DRUGS (2)
  1. CYMBALTA [Suspect]
     Indication: HEAD INJURY
     Dates: start: 20040101, end: 20050701
  2. TOPROL-XL [Concomitant]

REACTIONS (5)
  - HALLUCINATION, VISUAL [None]
  - PULMONARY THROMBOSIS [None]
  - RASH GENERALISED [None]
  - SUICIDAL IDEATION [None]
  - WEIGHT INCREASED [None]
